FAERS Safety Report 7020284-3 (Version None)
Quarter: 2010Q3

REPORT INFORMATION
  Report Type: 
  Country: None (occurrence: None)
  Receive Date: 20100929
  Receipt Date: 20100917
  Transmission Date: 20110219
  Serious: Yes (Hospitalization)
  Sender: FDA-Public Use
  Company Number: PHHY2010DE62394

PATIENT
  Age: 60 Year
  Sex: Female

DRUGS (4)
  1. RASILEZ [Suspect]
     Indication: HYPERTENSION
     Dosage: 150 MG/D
     Route: 048
     Dates: start: 20100901
  2. HYDROCHLOROTHIAZIDE [Concomitant]
     Dosage: UNK
  3. RAMIPRIL [Concomitant]
     Dosage: UNK
  4. BISOPROLOL [Concomitant]
     Dosage: UNK

REACTIONS (3)
  - ANXIETY [None]
  - ARRHYTHMIA [None]
  - CHEST DISCOMFORT [None]
